FAERS Safety Report 17495557 (Version 11)
Quarter: 2024Q3

REPORT INFORMATION
  Report Type: Spontaneous
  Country: US (occurrence: US)
  Receive Date: 20200304
  Receipt Date: 20240701
  Transmission Date: 20241017
  Serious: Yes (Other)
  Sender: PFIZER
  Company Number: US-PFIZER INC-2019531597

PATIENT
  Age: 67 Year
  Sex: Male
  Weight: 58.957 kg

DRUGS (10)
  1. CHANTIX [Suspect]
     Active Substance: VARENICLINE TARTRATE
     Indication: Smoking cessation therapy
     Dosage: 0.5 MG, DAILY (STARTER WEEK 0.5MG X11 TABLETS BY MOUTH DAILY)
     Route: 048
  2. CHANTIX [Suspect]
     Active Substance: VARENICLINE TARTRATE
     Dosage: 1 MG, DAILY (1MG X42 TABLETS BY MOUTH DAILY)
     Route: 048
  3. CHANTIX [Suspect]
     Active Substance: VARENICLINE TARTRATE
     Dosage: UNK (5 MG X 11, 1 MG X 42)
  4. CHANTIX [Suspect]
     Active Substance: VARENICLINE TARTRATE
     Dosage: 1 MG, 1X/DAY
     Route: 048
     Dates: start: 202009
  5. CHANTIX [Suspect]
     Active Substance: VARENICLINE TARTRATE
     Dosage: 1 MG, 2X/DAY
     Route: 048
  6. CHANTIX [Suspect]
     Active Substance: VARENICLINE TARTRATE
     Dosage: 1 DF, 2X/DAY
     Route: 048
  7. CHANTIX [Suspect]
     Active Substance: VARENICLINE TARTRATE
     Dosage: 0.5MG FIRST WEEK THREE WEEKS CONTINUOUS 1MG BY MOUTH
     Route: 048
     Dates: end: 2020
  8. TAMSULOSIN [Concomitant]
     Active Substance: TAMSULOSIN
     Indication: Prostatomegaly
     Dosage: 0.4 MG, DAILY (.4MG TABLET BY MOUTH DAILY)
     Route: 048
  9. SAW PALMETTO EXTRACT [Concomitant]
     Indication: Prostatomegaly
     Dosage: 450 MG
  10. LISINOPRIL [Concomitant]
     Active Substance: LISINOPRIL
     Dosage: 10 MG, 2X/DAY

REACTIONS (12)
  - Gastric cancer [Unknown]
  - Insomnia [Unknown]
  - Abnormal dreams [Unknown]
  - Urticaria [Recovered/Resolved]
  - Pruritus [Recovered/Resolved]
  - Weight increased [Unknown]
  - Blood pressure increased [Not Recovered/Not Resolved]
  - Prostatic specific antigen increased [Unknown]
  - Blood cholesterol increased [Unknown]
  - Swelling face [Not Recovered/Not Resolved]
  - Intentional product misuse [Unknown]
  - Product prescribing error [Unknown]

NARRATIVE: CASE EVENT DATE: 20191001
